FAERS Safety Report 6252207-9 (Version None)
Quarter: 2009Q2

REPORT INFORMATION
  Report Type: 
  Country: None (occurrence: None)
  Receive Date: 20090629
  Receipt Date: 20090616
  Transmission Date: 20091009
  Serious: Yes (Other)
  Sender: FDA-Public Use
  Company Number: IDA-00211

PATIENT
  Age: 31 Year
  Sex: Female

DRUGS (2)
  1. PROPRANOLOL HYDROCHLORIDE [Suspect]
     Indication: HYPERTHYROIDISM
     Dosage: 10 MG Q6H ORAL
     Route: 048
  2. METIMAZOL (THIAMAZOLE) [Concomitant]

REACTIONS (7)
  - ANXIETY [None]
  - BASEDOW'S DISEASE [None]
  - COMPLICATION OF PREGNANCY [None]
  - CONDITION AGGRAVATED [None]
  - EYE DISORDER [None]
  - PRE-ECLAMPSIA [None]
  - THYROID CANCER [None]
